FAERS Safety Report 9002060 (Version 4)
Quarter: 2013Q2

REPORT INFORMATION
  Report Type: Spontaneous
  Country: US (occurrence: US)
  Receive Date: 20130107
  Receipt Date: 20130612
  Transmission Date: 20140414
  Serious: No
  Sender: FDA-Public Use
  Company Number: US-ELI_LILLY_AND_COMPANY-US201301000788

PATIENT
  Age: 77 Year
  Sex: Female
  Weight: 90.7 kg

DRUGS (8)
  1. FORTEO [Suspect]
     Dosage: UNK
     Dates: start: 20120701, end: 201210
  2. ERGOCALCIFEROL [Concomitant]
     Dosage: 50000 IU, WEEKLY (1/W)
  3. CARVEDILOL [Concomitant]
  4. WARFARIN [Concomitant]
  5. AMIODARONE [Concomitant]
  6. L-THYROXINE [Concomitant]
  7. FUROSEMIDE [Concomitant]
  8. PRILOSEC [Concomitant]

REACTIONS (1)
  - Bone pain [Recovered/Resolved]
